FAERS Safety Report 20204825 (Version 1)
Quarter: 2021Q4

REPORT INFORMATION
  Report Type: Spontaneous
  Country: US (occurrence: US)
  Receive Date: 20211220
  Receipt Date: 20211220
  Transmission Date: 20220303
  Serious: No
  Sender: FDA-Public Use
  Company Number: US-ALLERGAN-2109320US

PATIENT
  Age: 60 Year
  Sex: Female

DRUGS (1)
  1. BLEPHAMIDE [Suspect]
     Active Substance: PREDNISOLONE ACETATE\SULFACETAMIDE SODIUM
     Indication: Ear infection
     Dosage: DROPS TO RIGHT EAR 1ST DOSE, THEN 2 DROPS TO RIGHT EAR SECOND DOSE
     Dates: start: 20210227, end: 20210228

REACTIONS (2)
  - Ear discomfort [Recovered/Resolved]
  - Off label use [Unknown]

NARRATIVE: CASE EVENT DATE: 20210227
